FAERS Safety Report 4905585-4 (Version None)
Quarter: 2006Q1

REPORT INFORMATION
  Report Type: 
  Country: None (occurrence: None)
  Receive Date: 20060203
  Receipt Date: 20060121
  Transmission Date: 20060701
  Serious: Yes (Hospitalization)
  Sender: FDA-Public Use
  Company Number: 9039997-2006-00002

PATIENT
  Age: 60 Year
  Sex: Male

DRUGS (2)
  1. LEVULAN KERASTICK TOPICAL SOLUTION, 20% [Suspect]
     Indication: ACTINIC KERATOSIS
     Dosage: 20%, ONCE, TOPICAL
     Route: 061
  2. COUMADIN [Concomitant]

REACTIONS (1)
  - CEREBROVASCULAR ACCIDENT [None]
